FAERS Safety Report 9202260 (Version 1)
Quarter: 2013Q1

REPORT INFORMATION
  Report Type: Spontaneous
  Country: US (occurrence: None)
  Receive Date: 20130326
  Receipt Date: 20130326
  Transmission Date: 20140127
  Serious: Yes (Other)
  Sender: FDA-Public Use
  Company Number: 2013SA027795

PATIENT
  Age: 46 Year
  Sex: Male

DRUGS (1)
  1. BULLFROG ULTIMATE SHEER PROTECTION FACE [Suspect]

REACTIONS (2)
  - Blister [None]
  - Thermal burn [None]
